FAERS Safety Report 20946801 (Version 2)
Quarter: 2022Q2

REPORT INFORMATION
  Report Type: Spontaneous
  Country: IR (occurrence: IR)
  Receive Date: 20220610
  Receipt Date: 20220610
  Transmission Date: 20220721
  Serious: Yes (Death, Life-Threatening, Hospitalization, Other)
  Sender: FDA-Public Use
  Company Number: IR-MLMSERVICE-20220511-3550146-1

PATIENT
  Age: 45 Year
  Sex: Female

DRUGS (15)
  1. METHOTREXATE SODIUM [Suspect]
     Active Substance: METHOTREXATE SODIUM
     Indication: Choriocarcinoma
     Dosage: FOURTH PHASE OF CHEMOTHERAPY
  2. METHOTREXATE SODIUM [Suspect]
     Active Substance: METHOTREXATE SODIUM
     Dosage: THE SECOND AND THIRD PHASES OF CHEMOTHERAPY. FIVE-DAY PERIOD MTX
  3. METHOTREXATE SODIUM [Suspect]
     Active Substance: METHOTREXATE SODIUM
     Dosage: FIFTH PHASE OF CHEMOTHERAPY (AMP METHOTREXATE (MTX) 500 MG)
  4. METHOTREXATE SODIUM [Suspect]
     Active Substance: METHOTREXATE SODIUM
     Dosage: THE SECOND AND THIRD PHASES OF CHEMOTHERAPY. FIVE-DAY PERIOD MTX
  5. METHOTREXATE SODIUM [Suspect]
     Active Substance: METHOTREXATE SODIUM
     Dosage: FIRST PHASE OF CHEMOTHERAPY
  6. ETOPOSIDE [Concomitant]
     Active Substance: ETOPOSIDE
     Indication: Choriocarcinoma
     Dosage: FIFTH PHASE OF CHEMOTHERAPY (AMP ETOPOSIDE 170 MG)
  7. SIROLIMUS [Concomitant]
     Active Substance: SIROLIMUS
     Indication: Immunosuppressant drug therapy
     Dosage: FREQ:24 H;
  8. NITROFURANTOIN [Concomitant]
     Active Substance: NITROFURANTOIN
     Dosage: FREQ:24 H;
  9. KYTRIL [Concomitant]
     Active Substance: GRANISETRON HYDROCHLORIDE
     Dosage: UNK
  10. INSULIN NOS [Concomitant]
     Active Substance: INSULIN NOS
     Dosage: UNK
  11. DACTINOMYCIN [Concomitant]
     Active Substance: DACTINOMYCIN
     Indication: Choriocarcinoma
     Dosage: FIFTH PHASE OF CHEMOTHERAPY (AMP DACTINOMYCINE 0.5 MG)
  12. PREDNISOLONE [Concomitant]
     Active Substance: PREDNISOLONE
     Indication: Immunosuppressant drug therapy
     Dosage: UNK
  13. PREDNISOLONE [Concomitant]
     Active Substance: PREDNISOLONE
     Dosage: 10 MG
  14. APREPITANT [Concomitant]
     Active Substance: APREPITANT
     Dosage: UNK
     Route: 048
  15. ENOXAPARIN [Concomitant]
     Active Substance: ENOXAPARIN
     Dosage: AMP ENOXAPARIN 40 MG

REACTIONS (9)
  - Hepatitis acute [Fatal]
  - Hepatic encephalopathy [Fatal]
  - Thrombocytopenia [Fatal]
  - Hepatic failure [Fatal]
  - Disseminated intravascular coagulation [Fatal]
  - Jaundice [Fatal]
  - Hypotension [Fatal]
  - Hepatic necrosis [Fatal]
  - Hepatitis cholestatic [Fatal]
